FAERS Safety Report 6803112-8 (Version None)
Quarter: 2010Q2

REPORT INFORMATION
  Report Type: 
  Country: None (occurrence: None)
  Receive Date: 20100628
  Receipt Date: 20100617
  Transmission Date: 20101027
  Serious: Yes (Hospitalization)
  Sender: FDA-Public Use
  Company Number: A0833451A

PATIENT
  Age: 46 Year
  Sex: Female
  Weight: 200 kg

DRUGS (1)
  1. AVANDIA [Suspect]
     Route: 048
     Dates: start: 19990101, end: 20021108

REACTIONS (9)
  - ACINETOBACTER INFECTION [None]
  - ANOXIC ENCEPHALOPATHY [None]
  - BACTERAEMIA [None]
  - CARDIAC FAILURE CONGESTIVE [None]
  - ENTEROCOCCAL INFECTION [None]
  - GENERALISED OEDEMA [None]
  - MECHANICAL VENTILATION [None]
  - PULMONARY HYPERTENSION [None]
  - RESPIRATORY FAILURE [None]
